FAERS Safety Report 7000749-0 (Version None)
Quarter: 2010Q3

REPORT INFORMATION
  Report Type: 
  Country: None (occurrence: None)
  Receive Date: 20100920
  Receipt Date: 20091103
  Transmission Date: 20110219
  Serious: No
  Sender: FDA-Public Use
  Company Number: US-ASTRAZENECA-2009SE16758

PATIENT
  Age: 35 Year
  Sex: Female
  Weight: 86.2 kg

DRUGS (6)
  1. SEROQUEL [Suspect]
     Indication: MANIA
     Route: 048
     Dates: start: 20070101, end: 20090101
  2. SEROQUEL [Suspect]
     Indication: BIPOLAR DISORDER
     Route: 048
     Dates: start: 20070101, end: 20090101
  3. CLOZAPINE [Concomitant]
  4. RISPERDAL [Concomitant]
     Dates: start: 19990101, end: 20020101
  5. ZYPREXA [Concomitant]
     Dates: start: 19990101, end: 20040101
  6. SYMBYAX [Concomitant]
     Dates: start: 19990101, end: 20040101

REACTIONS (2)
  - OBESITY [None]
  - TYPE 2 DIABETES MELLITUS [None]
